FAERS Safety Report 16606751 (Version 1)
Quarter: 2019Q3

REPORT INFORMATION
  Report Type: Spontaneous
  Country: US (occurrence: US)
  Receive Date: 20190606
  Receipt Date: 20190606
  Transmission Date: 20191004
  Serious: Yes (Hospitalization)
  Sender: FDA-Public Use
  Company Number: None

PATIENT
  Age: 57 Year
  Sex: Female

DRUGS (23)
  1. COSENTYX [Suspect]
     Active Substance: SECUKINUMAB
     Indication: PSORIASIS
     Route: 058
     Dates: start: 20181030
  2. MORPHINE SUL [Concomitant]
     Active Substance: MORPHINE SULFATE
  3. VITMAIN D [Concomitant]
  4. IPRATROPIUM [Concomitant]
     Active Substance: IPRATROPIUM
  5. LOSARTAN. [Concomitant]
     Active Substance: LOSARTAN
  6. SUCRALFATE. [Concomitant]
     Active Substance: SUCRALFATE
  7. PROPRANOLOL [Concomitant]
     Active Substance: PROPRANOLOL HYDROCHLORIDE
  8. RIZATRIPTAN. [Concomitant]
     Active Substance: RIZATRIPTAN
  9. POT CHLORIDE [Concomitant]
     Active Substance: POTASSIUM CHLORIDE
  10. VALSARTAN. [Concomitant]
     Active Substance: VALSARTAN
  11. SYNTHROID [Concomitant]
     Active Substance: LEVOTHYROXINE SODIUM
  12. ESOMEPRA MAG [Concomitant]
  13. FELODIPINE. [Concomitant]
     Active Substance: FELODIPINE
  14. MAG OXIDE [Concomitant]
     Active Substance: MAGNESIUM OXIDE
  15. MELOXICAM. [Concomitant]
     Active Substance: MELOXICAM
  16. METHYLPRED [Concomitant]
     Active Substance: METHYLPREDNISOLONE
  17. PILOCARPINE. [Concomitant]
     Active Substance: PILOCARPINE
  18. GABAPENTIN. [Concomitant]
     Active Substance: GABAPENTIN
  19. PROAIR HFA [Concomitant]
     Active Substance: ALBUTEROL SULFATE
  20. CEFUROXIME. [Concomitant]
     Active Substance: CEFUROXIME
  21. HYDROCO.APAP [Concomitant]
  22. ATENOLOL. [Concomitant]
     Active Substance: ATENOLOL
  23. NADOLOL. [Concomitant]
     Active Substance: NADOLOL

REACTIONS (1)
  - Ammonia abnormal [None]

NARRATIVE: CASE EVENT DATE: 20190606
